FAERS Safety Report 9485629 (Version 1)
Quarter: 2013Q3

REPORT INFORMATION
  Report Type: Report from Study
  Country: US (occurrence: US)
  Receive Date: 20130829
  Receipt Date: 20130829
  Transmission Date: 20140515
  Serious: Yes (Other)
  Sender: FDA-Public Use
  Company Number: US-ROCHE-1266308

PATIENT
  Age: 59 Year
  Sex: Female

DRUGS (5)
  1. CELLCEPT [Suspect]
     Indication: NEUROMYELITIS OPTICA
     Route: 048
  2. PREGABALIN [Concomitant]
     Route: 048
  3. PAROXETINE [Concomitant]
     Route: 048
  4. PYRIDIUM [Concomitant]
     Indication: URINARY TRACT PAIN
     Route: 048
  5. LORAZEPAM [Concomitant]
     Route: 048

REACTIONS (11)
  - Neoplasm malignant [Unknown]
  - Neuromyelitis optica [Unknown]
  - Hypoaesthesia [Unknown]
  - Fatigue [Unknown]
  - Muscular weakness [Unknown]
  - Paraesthesia [Unknown]
  - Vision blurred [Unknown]
  - Micturition urgency [Unknown]
  - Hypoaesthesia [Unknown]
  - Chest discomfort [Unknown]
  - Paraesthesia [Unknown]
